FAERS Safety Report 11081117 (Version 1)
Quarter: 2015Q2

REPORT INFORMATION
  Report Type: Spontaneous
  Country: US (occurrence: None)
  Receive Date: 20150424
  Receipt Date: 20150424
  Transmission Date: 20150821
  Serious: Yes (Hospitalization)
  Sender: FDA-Public Use
  Company Number: 1713747-2014-99940

PATIENT
  Age: 52 Year
  Sex: Male
  Weight: 106 kg

DRUGS (12)
  1. TRAMADOL [Concomitant]
     Active Substance: TRAMADOL
  2. LIBERTY CYCLER [Concomitant]
     Active Substance: DEVICE
  3. VENOFER [Concomitant]
     Active Substance: IRON SUCROSE
  4. DOCUSATE [Concomitant]
     Active Substance: DOCUSATE
  5. DELFLEX [Suspect]
     Active Substance: CALCIUM CHLORIDE\DEXTROSE MONOHYDRATE\MAGNESIUM CHLORIDE\SODIUM CHLORIDE\SODIUM LACTATE
     Indication: CHRONIC KIDNEY DISEASE
     Dosage: DAILY, PERITONEAL
     Dates: start: 20131015
  6. EPOGEN [Concomitant]
     Active Substance: ERYTHROPOIETIN
  7. LIBERTY CYCLER CASSETTE [Concomitant]
     Active Substance: DEVICE
  8. LOSARTAN [Concomitant]
     Active Substance: LOSARTAN
  9. KLONOPIN [Concomitant]
     Active Substance: CLONAZEPAM
  10. DELFLEX [Suspect]
     Active Substance: CALCIUM CHLORIDE\DEXTROSE MONOHYDRATE\MAGNESIUM CHLORIDE\SODIUM CHLORIDE\SODIUM LACTATE
     Indication: DIALYSIS
     Dosage: DAILY, PERITONEAL
     Dates: start: 20131015
  11. RENAVITE [Concomitant]
     Active Substance: VITAMINS
  12. AMLODIPINE [Concomitant]
     Active Substance: AMLODIPINE BESYLATE

REACTIONS (1)
  - Peritonitis [None]

NARRATIVE: CASE EVENT DATE: 20131015
